FAERS Safety Report 24002666 (Version 1)
Quarter: 2024Q2

REPORT INFORMATION
  Report Type: Report from Study
  Country: GB (occurrence: GB)
  Receive Date: 20240624
  Receipt Date: 20240624
  Transmission Date: 20240716
  Serious: Yes (Hospitalization)
  Sender: FDA-Public Use
  Company Number: GB-BoehringerIngelheim-2024-BI-035322

PATIENT
  Sex: Female

DRUGS (2)
  1. OFEV [Suspect]
     Active Substance: NINTEDANIB
     Indication: Product used for unknown indication
     Dates: start: 20230302
  2. OXYGEN [Concomitant]
     Active Substance: OXYGEN
     Indication: Product used for unknown indication

REACTIONS (1)
  - Drug ineffective [Unknown]
